FAERS Safety Report 8459275-4 (Version None)
Quarter: 2012Q2

REPORT INFORMATION
  Report Type: 
  Country: None (occurrence: None)
  Receive Date: 20120622
  Receipt Date: 20120613
  Transmission Date: 20120825
  Serious: Yes (Other)
  Sender: FDA-Public Use
  Company Number: JP-VERTEX PHARMACEUTICALS INC.-AE-2012-006175

PATIENT
  Age: 70 Year
  Sex: Female

DRUGS (15)
  1. TELAVIC (TELAPREVIR) [Suspect]
     Route: 048
     Dates: start: 20120309
  2. URSO 250 [Concomitant]
     Route: 048
     Dates: end: 20120216
  3. CEREKINON [Concomitant]
     Route: 048
  4. REBETOL [Concomitant]
     Route: 048
     Dates: start: 20120309, end: 20120315
  5. VOLTAREN [Concomitant]
     Route: 048
     Dates: start: 20120120, end: 20120401
  6. REBETOL [Concomitant]
     Route: 048
     Dates: start: 20120330
  7. REBETOL [Concomitant]
     Route: 048
     Dates: start: 20120210, end: 20120308
  8. HIRUDOID [Concomitant]
     Route: 061
     Dates: start: 20120120
  9. TELAVIC (TELAPREVIR) [Suspect]
     Indication: HEPATITIS C
     Route: 048
     Dates: start: 20120120, end: 20120308
  10. REBETOL [Concomitant]
     Indication: HEPATITIS C
     Route: 048
     Dates: start: 20120120, end: 20120209
  11. CELEBREX [Concomitant]
     Route: 048
  12. NEXIUM [Concomitant]
     Route: 048
  13. REBETOL [Concomitant]
     Route: 048
     Dates: start: 20120330
  14. PEGINTERFERON ALFA-2B [Concomitant]
     Indication: HEPATITIS C
     Route: 058
     Dates: start: 20120120
  15. DAI-KENCHU-TO [Concomitant]
     Route: 048

REACTIONS (6)
  - DECREASED APPETITE [None]
  - RASH PRURITIC [None]
  - HYPERURICAEMIA [None]
  - ECZEMA [None]
  - RENAL IMPAIRMENT [None]
  - HAEMOGLOBIN DECREASED [None]
